FAERS Safety Report 7814352-3 (Version None)
Quarter: 2011Q4

REPORT INFORMATION
  Report Type: 
  Country: None (occurrence: None)
  Receive Date: 20111012
  Receipt Date: 20110927
  Transmission Date: 20120403
  Serious: Yes (Hospitalization)
  Sender: FDA-Public Use
  Company Number: 2011SGN00197

PATIENT
  Age: 18 Year
  Sex: Female
  Weight: 68.7 kg

DRUGS (3)
  1. BRENTUXIMAB VEDOTIN (BRENTUXIMAB VEDOTIN) INJECTION [Suspect]
     Indication: HODGKIN'S DISEASE
     Dosage: 1.8 MG/KG, Q21D, INTRAVENOUS
     Route: 042
     Dates: start: 20110809, end: 20110901
  2. LOVENOX [Concomitant]
  3. BACTRIM DS [Concomitant]

REACTIONS (3)
  - BACTERIAL INFECTION [None]
  - DEVICE RELATED INFECTION [None]
  - CULTURE POSITIVE [None]
